FAERS Safety Report 5159434-2 (Version None)
Quarter: 2006Q4

REPORT INFORMATION
  Report Type: 
  Country: None (occurrence: None)
  Receive Date: 20061122
  Receipt Date: 20061122
  Transmission Date: 20070319
  Serious: Yes (Hospitalization)
  Sender: FDA-Public Use
  Company Number: None

PATIENT
  Sex: Female
  Weight: 56.6996 kg

DRUGS (5)
  1. MOBIC [Suspect]
     Indication: ARTHRITIS
     Dosage: 30MG 15 MG: 2X DAY
     Dates: start: 20060822, end: 20060919
  2. LYRICA [Concomitant]
  3. AMBIEN CR [Concomitant]
  4. ZOLOFT [Concomitant]
  5. ABILIFY [Concomitant]

REACTIONS (23)
  - BACK PAIN [None]
  - BLADDER DISORDER [None]
  - BLOOD PRESSURE SYSTOLIC INCREASED [None]
  - BOWEL SOUNDS ABNORMAL [None]
  - CHILLS [None]
  - DELUSION [None]
  - DIARRHOEA [None]
  - DYSPHORIA [None]
  - GAIT DISTURBANCE [None]
  - HEADACHE [None]
  - HYPOAESTHESIA [None]
  - INSOMNIA [None]
  - MANIA [None]
  - PAIN IN EXTREMITY [None]
  - PYREXIA [None]
  - RENAL PAIN [None]
  - SKIN DISORDER [None]
  - SKIN LESION [None]
  - SKIN ODOUR ABNORMAL [None]
  - TACHYCARDIA [None]
  - THINKING ABNORMAL [None]
  - URINARY TRACT INFECTION [None]
  - URINE OUTPUT DECREASED [None]
